FAERS Safety Report 4630317-7 (Version None)
Quarter: 2005Q2

REPORT INFORMATION
  Report Type: 
  Country: None (occurrence: None)
  Receive Date: 20050405
  Receipt Date: 20050405
  Transmission Date: 20051028
  Serious: Yes (Hospitalization)
  Sender: FDA-Public Use
  Company Number: None

PATIENT
  Age: 54 Year
  Sex: Female
  Weight: 61.25 kg

DRUGS (3)
  1. PACLITAXEL [Suspect]
     Indication: OVARIAN CANCER
     Dosage: 290 MG 3 WEEK CYCLE DAY 1
     Dates: start: 20040729
  2. GEMCITABINE [Suspect]
     Indication: OVARIAN CANCER
     Dosage: 2600MG-DAY 1+8
     Dates: start: 20040729
  3. CARBOPLATIN [Suspect]
     Indication: OVARIAN CANCER
     Dosage: 750 MG DAY 1
     Dates: start: 20040729

REACTIONS (3)
  - CATHETER RELATED INFECTION [None]
  - HYPOTENSION [None]
  - SEPSIS [None]
